FAERS Safety Report 4607819-2 (Version None)
Quarter: 2005Q1

REPORT INFORMATION
  Report Type: 
  Country: None (occurrence: None)
  Receive Date: 20050314
  Receipt Date: 20050304
  Transmission Date: 20050727
  Serious: Yes (Other)
  Sender: FDA-Public Use
  Company Number: US-GLAXOSMITHKLINE-A0548287A

PATIENT
  Age: 76 Year
  Sex: Female

DRUGS (4)
  1. DEBROX DROPS [Suspect]
     Route: 001
     Dates: start: 20050302, end: 20050302
  2. METOPROLOL [Concomitant]
  3. HYDROCHLOROTHIAZIDE [Concomitant]
  4. LEVOTHYROXINE [Concomitant]
     Indication: HYPOTHYROIDISM

REACTIONS (4)
  - EAR DISCOMFORT [None]
  - EAR PAIN [None]
  - HEARING IMPAIRED [None]
  - LOSS OF CONSCIOUSNESS [None]
